FAERS Safety Report 8011916-1 (Version None)
Quarter: 2011Q4

REPORT INFORMATION
  Report Type: 
  Country: None (occurrence: None)
  Receive Date: 20111228
  Receipt Date: 20111227
  Transmission Date: 20120403
  Serious: Yes (Death, Hospitalization)
  Sender: FDA-Public Use
  Company Number: US-GLAXOSMITHKLINE-A0905643A

PATIENT
  Age: 41 Year
  Sex: Female

DRUGS (1)
  1. AVANDIA [Suspect]
     Indication: DIABETES MELLITUS
     Dosage: 2MG TWICE PER DAY
     Route: 048
     Dates: start: 20010101, end: 20070101

REACTIONS (8)
  - CORONARY ARTERY DISEASE [None]
  - ISCHAEMIC CARDIOMYOPATHY [None]
  - MITRAL VALVE INCOMPETENCE [None]
  - CARDIAC FAILURE CONGESTIVE [None]
  - ATRIAL FLUTTER [None]
  - VENTRICULAR FIBRILLATION [None]
  - MULTI-ORGAN FAILURE [None]
  - MYOCARDIAL INFARCTION [None]
